FAERS Safety Report 7378548-X (Version None)
Quarter: 2011Q1

REPORT INFORMATION
  Report Type: 
  Country: None (occurrence: None)
  Receive Date: 20110328
  Receipt Date: 20110315
  Transmission Date: 20110831
  Serious: Yes (Other)
  Sender: FDA-Public Use
  Company Number: US-TYCO HEALTHCARE/MALLINCKRODT-T201100604

PATIENT
  Age: 66 Year
  Sex: Female

DRUGS (2)
  1. TOFRANIL-PM [Suspect]
     Indication: DEPRESSION
     Dosage: DAILY FOR 40 YEARS
  2. HORMONES NOS [Suspect]
     Indication: HORMONE REPLACEMENT THERAPY
     Dosage: UNK

REACTIONS (2)
  - PIGMENTATION DISORDER [None]
  - SOCIAL AVOIDANT BEHAVIOUR [None]
